FAERS Safety Report 4806570-3 (Version None)
Quarter: 2005Q4

REPORT INFORMATION
  Report Type: 
  Country: None (occurrence: None)
  Receive Date: 20051021
  Receipt Date: 20051011
  Transmission Date: 20060501
  Serious: Yes (Death, Hospitalization)
  Sender: FDA-Public Use
  Company Number: US-BRISTOL-MYERS SQUIBB COMPANY-13140405

PATIENT
  Age: 75 Year
  Sex: Female
  Weight: 45 kg

DRUGS (5)
  1. ABILIFY [Suspect]
     Indication: DEMENTIA
     Route: 048
     Dates: start: 20050301
  2. NAMENDA [Concomitant]
  3. LOTREL [Concomitant]
  4. TRAZODONE HCL [Concomitant]
  5. AMBIEN [Concomitant]
     Dates: start: 20050301

REACTIONS (2)
  - HIP ARTHROPLASTY [None]
  - PULMONARY EMBOLISM [None]
